FAERS Safety Report 4808782-1 (Version None)
Quarter: 2005Q4

REPORT INFORMATION
  Report Type: 
  Country: None (occurrence: None)
  Receive Date: 20051025
  Receipt Date: 20050721
  Transmission Date: 20060501
  Serious: Yes (Death, Hospitalization, Disabling)
  Sender: FDA-Public Use
  Company Number: US-MERCK-0507USA03359

PATIENT
  Age: 52 Year
  Sex: Female
  Weight: 55 kg

DRUGS (32)
  1. VIOXX [Suspect]
     Indication: ARTHRITIS
     Route: 048
     Dates: start: 20000401, end: 20030814
  2. ACYCLOVIR [Concomitant]
     Route: 065
  3. AGGRENOX [Concomitant]
     Route: 065
  4. VENTOLIN [Concomitant]
     Route: 065
  5. ARAVA [Concomitant]
     Route: 065
  6. BIAXIN [Concomitant]
     Route: 065
  7. LORATADINE [Concomitant]
     Route: 065
  8. CYCLOBENZAPRINE HYDROCHLORIDE [Concomitant]
     Route: 065
  9. ESTRATAB [Concomitant]
     Route: 065
  10. FLUOXETINE [Concomitant]
     Route: 065
  11. FOSAMAX [Concomitant]
     Route: 065
  12. GUAIFENESIN [Concomitant]
     Route: 065
  13. CLORAZEPATE DIPOTASSIUM [Concomitant]
     Route: 065
  14. HYDROCODONE HYDROCHLORIDE [Concomitant]
     Route: 065
     Dates: start: 20021212, end: 20030814
  15. LIPITOR [Concomitant]
     Route: 065
     Dates: start: 19970101, end: 20021119
  16. LOTENSIN [Concomitant]
     Route: 065
  17. MENEST [Concomitant]
     Route: 065
  18. METHOTREXATE [Concomitant]
     Route: 065
     Dates: start: 20020101
  19. MEPREDNISONE [Concomitant]
     Route: 065
  20. NASONEX [Concomitant]
     Route: 065
  21. OMNICEF [Concomitant]
     Route: 065
  22. OXYCONTIN [Concomitant]
     Route: 065
  23. PROZAC [Concomitant]
     Route: 065
  24. PREDNISONE [Concomitant]
     Route: 065
     Dates: start: 20020101, end: 20050101
  25. PREVACID [Concomitant]
     Route: 065
  26. PRILOSEC [Concomitant]
     Route: 065
  27. PROMETHAZINE [Concomitant]
     Route: 065
  28. PROPOXYPHENE HYDROCHLORIDE [Concomitant]
     Route: 065
     Dates: start: 19960101, end: 20030101
  29. RELAFEN [Concomitant]
     Route: 065
  30. TRIMETHOPRIM [Concomitant]
     Route: 065
  31. ZITHROMAX [Concomitant]
     Route: 065
  32. ZYRTEC [Concomitant]
     Route: 065

REACTIONS (12)
  - CARDIAC FAILURE CONGESTIVE [None]
  - CARDIO-RESPIRATORY ARREST [None]
  - CEREBROVASCULAR ACCIDENT [None]
  - DUODENITIS [None]
  - GASTRITIS [None]
  - GASTROOESOPHAGEAL REFLUX DISEASE [None]
  - HAEMATOCHEZIA [None]
  - HIATUS HERNIA [None]
  - MYOCARDIAL INFARCTION [None]
  - OESOPHAGITIS [None]
  - RENAL FAILURE ACUTE [None]
  - VENTRICULAR TACHYCARDIA [None]
